FAERS Safety Report 23929531 (Version 2)
Quarter: 2025Q3

REPORT INFORMATION
  Report Type: Spontaneous
  Country: US (occurrence: US)
  Receive Date: 20240601
  Receipt Date: 20250703
  Transmission Date: 20251020
  Serious: No
  Sender: RADIUS PHARM
  Company Number: US-RADIUS HEALTH INC.-2024US001610

PATIENT
  Sex: Female

DRUGS (1)
  1. TYMLOS [Suspect]
     Active Substance: ABALOPARATIDE
     Indication: Senile osteoporosis
     Route: 058
     Dates: start: 202402

REACTIONS (7)
  - Dizziness [Unknown]
  - Head discomfort [Unknown]
  - Contusion [Unknown]
  - Headache [Recovered/Resolved]
  - Incorrect product administration duration [Unknown]
  - Product dose omission in error [Unknown]
  - Nausea [Recovered/Resolved]
